FAERS Safety Report 16570787 (Version 1)
Quarter: 2019Q3

REPORT INFORMATION
  Report Type: Spontaneous
  Country: FR (occurrence: FR)
  Receive Date: 20190715
  Receipt Date: 20190715
  Transmission Date: 20191004
  Serious: Yes (Hospitalization)
  Sender: FDA-Public Use
  Company Number: FR-GLAXOSMITHKLINE-FR2019126089

PATIENT
  Age: 26 Year
  Sex: Female
  Weight: 50 kg

DRUGS (1)
  1. ZELITREX [Suspect]
     Active Substance: VALACYCLOVIR HYDROCHLORIDE
     Indication: VARICELLA
     Dosage: UNK
     Route: 048
     Dates: start: 20190114, end: 20190128

REACTIONS (2)
  - Drug ineffective [Recovered/Resolved]
  - Lung disorder [Recovering/Resolving]

NARRATIVE: CASE EVENT DATE: 20190128
